FAERS Safety Report 13156176 (Version 2)
Quarter: 2017Q1

REPORT INFORMATION
  Report Type: Spontaneous
  Country: JP (occurrence: JP)
  Receive Date: 20170126
  Receipt Date: 20170316
  Transmission Date: 20170428
  Serious: Yes (Hospitalization)
  Sender: FDA-Public Use
  Company Number: GXJP2017JP000476

PATIENT
  Age: 84 Year
  Sex: Male
  Weight: 50.6 kg

DRUGS (25)
  1. ISCOTIN [Suspect]
     Active Substance: ISONIAZID
     Dosage: 230 MG, QD
     Route: 048
     Dates: start: 20160714, end: 20160721
  2. ISCOTIN [Suspect]
     Active Substance: ISONIAZID
     Dosage: 25 MG, QD
     Route: 048
     Dates: start: 20160808, end: 20160810
  3. ISCOTIN [Suspect]
     Active Substance: ISONIAZID
     Dosage: 100 MG, QD
     Route: 048
     Dates: start: 20160814, end: 20160816
  4. ETHAMBUTOL [Concomitant]
     Active Substance: ETHAMBUTOL HYDROCHLORIDE
     Dosage: 500 MG, QD
     Route: 048
     Dates: start: 20160714, end: 20160721
  5. RIFAMPICIN CAPSULES [Suspect]
     Active Substance: RIFAMPIN
     Indication: PULMONARY TUBERCULOSIS
     Dosage: 450 MG, QD
     Route: 048
     Dates: start: 20160615, end: 20160711
  6. PYRAZINAMIDE. [Concomitant]
     Active Substance: PYRAZINAMIDE
     Dosage: UNK
     Route: 065
  7. GASTER [Concomitant]
     Active Substance: FAMOTIDINE
     Indication: PRODUCT USED FOR UNKNOWN INDICATION
     Route: 048
  8. RIFAMPICIN CAPSULES [Suspect]
     Active Substance: RIFAMPIN
     Dosage: 25 MG, QD
     Route: 048
     Dates: start: 20160726, end: 20160728
  9. ISCOTIN [Suspect]
     Active Substance: ISONIAZID
     Dosage: 300 MG, QD
     Route: 048
     Dates: start: 20160820, end: 20160822
  10. ISCOTIN [Suspect]
     Active Substance: ISONIAZID
     Dosage: 200 MG, QD
     Route: 048
     Dates: start: 20160817, end: 20160819
  11. PYRAZINAMIDE. [Concomitant]
     Active Substance: PYRAZINAMIDE
     Indication: PULMONARY TUBERCULOSIS
     Dosage: 900 MG, QW3
     Route: 065
     Dates: start: 20160615, end: 20160711
  12. ETHAMBUTOL [Concomitant]
     Active Substance: ETHAMBUTOL HYDROCHLORIDE
     Indication: PULMONARY TUBERCULOSIS
     Dosage: 500 MG, QD
     Route: 048
     Dates: start: 20160615, end: 20160711
  13. HARNAL [Concomitant]
     Active Substance: TAMSULOSIN HYDROCHLORIDE
     Indication: PRODUCT USED FOR UNKNOWN INDICATION
     Route: 048
  14. RIFAMPICIN CAPSULES [Suspect]
     Active Substance: RIFAMPIN
     Dosage: 50 MG, QD
     Route: 048
     Dates: start: 20160729, end: 20160731
  15. RIFAMPICIN CAPSULES [Suspect]
     Active Substance: RIFAMPIN
     Dosage: 100 MG, QD
     Route: 048
     Dates: start: 20160801, end: 20160802
  16. ISCOTIN [Suspect]
     Active Substance: ISONIAZID
     Indication: PULMONARY TUBERCULOSIS
     Dosage: 230 MG, QD
     Route: 048
     Dates: start: 20160615, end: 20160711
  17. ISCOTIN [Suspect]
     Active Substance: ISONIAZID
     Dosage: 50 MG, QD
     Route: 048
     Dates: start: 20160811, end: 20160813
  18. MYCOBUTIN [Concomitant]
     Active Substance: RIFABUTIN
     Indication: PULMONARY TUBERCULOSIS
     Dosage: 150 MG, QD
     Route: 048
     Dates: start: 20160802, end: 20160805
  19. LEVOFLOXACIN. [Concomitant]
     Active Substance: LEVOFLOXACIN
     Indication: PULMONARY TUBERCULOSIS
     Route: 065
     Dates: start: 20160808
  20. RIFAMPICIN CAPSULES [Suspect]
     Active Substance: RIFAMPIN
     Dosage: 450 MG, QD
     Route: 048
     Dates: start: 20160714, end: 20160721
  21. ISCOTIN [Suspect]
     Active Substance: ISONIAZID
     Dosage: 400 MG, QD
     Route: 048
     Dates: start: 20160823
  22. FOLIAMIN [Concomitant]
     Active Substance: FOLIC ACID
     Indication: PRODUCT USED FOR UNKNOWN INDICATION
     Route: 048
  23. ETHAMBUTOL [Concomitant]
     Active Substance: ETHAMBUTOL HYDROCHLORIDE
     Dosage: UNK
     Route: 048
     Dates: start: 20160726
  24. STREPTOMYCIN [Concomitant]
     Active Substance: STREPTOMYCIN\STREPTOMYCIN SULFATE
     Indication: PULMONARY TUBERCULOSIS
     Dosage: 500 MG, QW3
     Route: 042
     Dates: start: 20160823
  25. NIKORANMART [Concomitant]
     Active Substance: NICORANDIL
     Indication: PRODUCT USED FOR UNKNOWN INDICATION
     Route: 048

REACTIONS (1)
  - Pancreatitis [Recovering/Resolving]

NARRATIVE: CASE EVENT DATE: 20160721
